FAERS Safety Report 8126257-1 (Version None)
Quarter: 2012Q1

REPORT INFORMATION
  Report Type: 
  Country: None (occurrence: None)
  Receive Date: 20120209
  Receipt Date: 20120208
  Transmission Date: 20120608
  Serious: Yes (Death)
  Sender: FDA-Public Use
  Company Number: PHHY2011DE39824

PATIENT
  Sex: Female
  Weight: 68 kg

DRUGS (25)
  1. ZOMETA [Suspect]
     Dosage: 4MG
     Route: 042
     Dates: start: 20090924
  2. ZOMETA [Suspect]
     Dosage: 4 MG, UNK
     Route: 042
     Dates: start: 20100211
  3. ZOMETA [Suspect]
     Dosage: 4 MG, UNK
     Route: 042
     Dates: start: 20090827
  4. ZOMETA [Suspect]
     Dosage: 4 MG, UNK
     Route: 042
     Dates: start: 20091022
  5. ZOMETA [Suspect]
     Dosage: 4 MG, UNK
     Route: 042
     Dates: start: 20100318
  6. RAMIPRIL [Concomitant]
     Dosage: 10 MG, UNK
     Dates: start: 20050101
  7. ZOMETA [Suspect]
     Indication: BONE DISORDER
     Dosage: 4 MG, UNK
     Route: 042
     Dates: start: 20090604
  8. ZOMETA [Suspect]
     Dosage: 4 MG, UNK
     Route: 042
     Dates: start: 20100422
  9. ZOMETA [Suspect]
     Dosage: 4 MG, UNK
     Route: 042
     Dates: start: 20100819
  10. ZOMETA [Suspect]
     Dosage: 4 MG, UNK
     Route: 042
     Dates: start: 20091218
  11. FLUPIRTINE MALEATE [Concomitant]
     Dosage: 42 MG, UNK
     Dates: start: 20050101
  12. FLUPIRTINE MALEATE [Concomitant]
  13. ZOMETA [Suspect]
     Dosage: 4 MG, UNK
     Route: 042
     Dates: start: 20090702
  14. ZOMETA [Suspect]
     Dosage: 4 MG, UNK
     Route: 042
     Dates: start: 20091119
  15. ZOMETA [Suspect]
     Dosage: 4 MG, UNK
     Route: 042
     Dates: start: 20100527
  16. ZOMETA [Suspect]
     Dosage: 4 MG, UNK
     Route: 042
     Dates: start: 20100916
  17. FUROSEMIDE [Concomitant]
     Dosage: 40 MG, UNK
     Dates: start: 20050101
  18. IBUPROFEN TABLETS [Concomitant]
     Dosage: 1200 MG, UNK
     Dates: start: 20080301
  19. BUPRENORPHINE [Concomitant]
  20. ZOMETA [Suspect]
     Dosage: 4 MG, UNK
     Route: 042
     Dates: start: 20100722
  21. OMEPRAZOLE [Concomitant]
  22. OXYCODONE HCL [Concomitant]
     Dosage: 160 MG, UNK
     Dates: start: 20080301
  23. ZOMETA [Suspect]
     Dosage: 4 MG, UNK
     Route: 042
     Dates: start: 20090730
  24. ZOMETA [Suspect]
     Dosage: 4 MG, UNK
     Route: 042
     Dates: start: 20100114
  25. ZOMETA [Suspect]
     Dosage: 4 MG, UNK
     Route: 042
     Dates: start: 20100624

REACTIONS (3)
  - DEATH [None]
  - WEIGHT DECREASED [None]
  - BONE PAIN [None]
